FAERS Safety Report 9556067 (Version 1)
Quarter: 2013Q3

REPORT INFORMATION
  Report Type: Spontaneous
  Country: US (occurrence: None)
  Receive Date: 20130726
  Receipt Date: 20130726
  Transmission Date: 20140515
  Serious: Yes (Hospitalization)
  Sender: FDA-Public Use
  Company Number: UTC-022901

PATIENT
  Age: 53 Year
  Sex: Female
  Weight: 70.5 kg

DRUGS (2)
  1. REMODULIN [Suspect]
     Indication: PULMONARY ARTERIAL HYPERTENSION
     Dosage: 129.6 UG/KG (0.09 UG/KG, 1 IN 1 MIN), INTRAVENOUS DRIP
     Route: 041
     Dates: start: 20100310
  2. COUMADIN (WARFARIN SODIUM) [Concomitant]

REACTIONS (2)
  - Device related infection [None]
  - Drug hypersensitivity [None]
